FAERS Safety Report 8821080 (Version 2)
Quarter: 2012Q4

REPORT INFORMATION
  Report Type: 
  Country: HK (occurrence: HK)
  Receive Date: 20121002
  Receipt Date: 20121012
  Transmission Date: 20130627
  Serious: Yes (Hospitalization)
  Sender: FDA-Public Use
  Company Number: HK-B.I. PHARMACEUTICALS,INC./RIDGEFIELD-2012-CS-01383HK

PATIENT
  Age: 6 None
  Sex: Female

DRUGS (2)
  1. PRADAXA [Suspect]
     Indication: CEREBROVASCULAR ACCIDENT PROPHYLAXIS
     Dosage: 220 mg
     Route: 048
     Dates: start: 20120915, end: 20120917
  2. CLOPIDOGREL [Concomitant]
     Dates: start: 20120903

REACTIONS (1)
  - Ischaemic stroke [Not Recovered/Not Resolved]
